FAERS Safety Report 9792639 (Version 1)
Quarter: 2014Q1

REPORT INFORMATION
  Report Type: Spontaneous
  Country: US (occurrence: US)
  Receive Date: 20140102
  Receipt Date: 20140102
  Transmission Date: 20141002
  Serious: No
  Sender: FDA-Public Use
  Company Number: US-SANOFI-AVENTIS-2013SA002653

PATIENT
  Age: 48 Year
  Sex: Female
  Weight: 58 kg

DRUGS (7)
  1. AUBAGIO [Suspect]
     Indication: MULTIPLE SCLEROSIS
     Route: 048
     Dates: start: 20121205, end: 20130521
  2. AUBAGIO [Suspect]
     Indication: MULTIPLE SCLEROSIS
     Route: 048
     Dates: start: 20130916
  3. APRI [Concomitant]
     Indication: ENDOMETRIOSIS
     Dates: start: 1997
  4. LOSARTAN [Concomitant]
     Indication: HYPERTENSION
     Dates: start: 201205
  5. MULTIVITAMINS [Concomitant]
     Indication: SUPPLEMENTATION THERAPY
     Dates: start: 1980
  6. B COMPLEX [Concomitant]
     Indication: SUPPLEMENTATION THERAPY
     Dates: start: 1980
  7. FERON [Concomitant]
     Indication: SUPPLEMENTATION THERAPY

REACTIONS (5)
  - Rotavirus infection [Recovered/Resolved]
  - Diarrhoea [Recovered/Resolved]
  - Drug dose omission [Unknown]
  - Abdominal pain lower [Recovered/Resolved]
  - Alopecia [Recovered/Resolved]
